FAERS Safety Report 7189727-9 (Version None)
Quarter: 2010Q4

REPORT INFORMATION
  Report Type: 
  Country: None (occurrence: None)
  Receive Date: 20101223
  Receipt Date: 20101215
  Transmission Date: 20110411
  Serious: No
  Sender: FDA-Public Use
  Company Number: US-BIOGENIDEC-2010BI044124

PATIENT
  Age: 50 Year
  Sex: Female

DRUGS (1)
  1. TYSABRI [Suspect]
     Indication: MULTIPLE SCLEROSIS
     Route: 042
     Dates: start: 20100609

REACTIONS (9)
  - ABDOMINAL DISCOMFORT [None]
  - AMNESIA [None]
  - CONFUSIONAL STATE [None]
  - FAECAL INCONTINENCE [None]
  - HEADACHE [None]
  - MUSCLE SPASMS [None]
  - TINNITUS [None]
  - URINARY INCONTINENCE [None]
  - VOMITING [None]
